FAERS Safety Report 9720999 (Version 1)
Quarter: 2013Q4

REPORT INFORMATION
  Report Type: Spontaneous
  Country: BR (occurrence: BR)
  Receive Date: 20131129
  Receipt Date: 20131129
  Transmission Date: 20140711
  Serious: Yes (Hospitalization)
  Sender: FDA-Public Use
  Company Number: BR-ASTRAZENECA-2013SE86546

PATIENT
  Age: 74 Year
  Sex: Male
  Weight: 74.5 kg

DRUGS (2)
  1. VANNAIR [Suspect]
     Indication: NASOPHARYNGITIS
     Dosage: 80/4.5 MCG, AS REQUIRED
     Route: 055
     Dates: start: 2012
  2. LIPITOR [Concomitant]
     Indication: BLOOD CHOLESTEROL INCREASED
     Dosage: DAILY
     Route: 048
     Dates: start: 1995

REACTIONS (2)
  - Coronary artery occlusion [Recovered/Resolved]
  - Off label use [Not Recovered/Not Resolved]
